FAERS Safety Report 4402109-5 (Version None)
Quarter: 2004Q3

REPORT INFORMATION
  Report Type: 
  Country: None (occurrence: None)
  Receive Date: 20040720
  Receipt Date: 20040714
  Transmission Date: 20050211
  Serious: Yes (Other)
  Sender: FDA-Public Use
  Company Number: US-BRISTOL-MYERS SQUIBB COMPANY-12640710

PATIENT
  Sex: Female

DRUGS (3)
  1. ESTRACE [Suspect]
     Dates: start: 19960101, end: 20000101
  2. PREMPRO [Suspect]
     Dates: start: 19960101, end: 20000101
  3. MEDROXYPROGESTERONE ACETATE [Suspect]
     Dates: start: 19960101, end: 20000101

REACTIONS (2)
  - BREAST CANCER [None]
  - OVARIAN CANCER [None]
